FAERS Safety Report 14584405 (Version 1)
Quarter: 2018Q1

REPORT INFORMATION
  Report Type: Report from Study
  Country: CN (occurrence: CN)
  Receive Date: 20180301
  Receipt Date: 20180301
  Transmission Date: 20180509
  Serious: Yes (Death)
  Sender: FDA-Public Use
  Company Number: CN-ROCHE-2077573

PATIENT

DRUGS (5)
  1. METHYLPREDNISOLONE. [Suspect]
     Active Substance: METHYLPREDNISOLONE
     Indication: PROPHYLAXIS AGAINST TRANSPLANT REJECTION
     Dosage: GIVEN AT THE FIRST DAY AFTER TRANSPLANTATION, THEN GRADUALLY REDUCED DAILY AND DISCONTINUED AFTER TH
     Route: 042
  2. TACROLIMUS. [Suspect]
     Active Substance: TACROLIMUS
     Indication: PROPHYLAXIS AGAINST TRANSPLANT REJECTION
     Dosage: THE INITIAL DOSAGE OF TAC WAS GIVEN 0.05-0.1 MG/KG PER DAY, THE IDEAL RANGE OF CTAC WAS 5-10 NG/ML D
     Route: 065
  3. RAPAMYCIN [Suspect]
     Active Substance: SIROLIMUS
     Indication: PROPHYLAXIS AGAINST TRANSPLANT REJECTION
     Route: 065
  4. MYCOPHENOLATE MOFETIL. [Suspect]
     Active Substance: MYCOPHENOLATE MOFETIL
     Indication: PROPHYLAXIS AGAINST TRANSPLANT REJECTION
     Dosage: 1.0 G/D OR 1.5 G/D INITIALLY AND WAS WITHDREW WHEN SEVERE SIDE EFFECTS OCCURRED
     Route: 065
  5. PREDNISONE. [Suspect]
     Active Substance: PREDNISONE
     Indication: PROPHYLAXIS AGAINST TRANSPLANT REJECTION
     Dosage: IT WAS ALSO TAILORED AND DISCONTINUED WITHIN THE FIRST 3 MONTHS AFTER TRANSPLANTATION
     Route: 048

REACTIONS (3)
  - Sepsis [Fatal]
  - Neoplasm recurrence [Fatal]
  - Infection [Unknown]
